FAERS Safety Report 20015362 (Version 1)
Quarter: 2021Q4

REPORT INFORMATION
  Report Type: Spontaneous
  Country: US (occurrence: None)
  Receive Date: 20211029
  Receipt Date: 20211029
  Transmission Date: 20220303
  Serious: No
  Sender: FDA-Public Use
  Company Number: None

PATIENT
  Age: 21 Year
  Sex: Male
  Weight: 66 kg

DRUGS (1)
  1. BUPRENORPHINE [Suspect]
     Active Substance: BUPRENORPHINE
     Indication: Drug use disorder
     Route: 058
     Dates: start: 20210910, end: 20211008

REACTIONS (2)
  - Eschar [None]
  - Injection site necrosis [None]

NARRATIVE: CASE EVENT DATE: 20211008
